FAERS Safety Report 8272669-5 (Version None)
Quarter: 2012Q2

REPORT INFORMATION
  Report Type: 
  Country: None (occurrence: None)
  Receive Date: 20120411
  Receipt Date: 20120402
  Transmission Date: 20120825
  Serious: Yes (Hospitalization)
  Sender: FDA-Public Use
  Company Number: FR-BAXTER-2012BH002281

PATIENT
  Sex: Male

DRUGS (5)
  1. PANTOPRAZOLE SODIUM [Suspect]
     Route: 048
     Dates: start: 20111222, end: 20120104
  2. MABTHERA [Suspect]
     Route: 042
     Dates: start: 20111206, end: 20111206
  3. MOTILIUM                           /00498201/ [Suspect]
     Route: 048
     Dates: start: 20111222
  4. GAVISCON                           /00237601/ [Suspect]
     Route: 048
     Dates: start: 20111222
  5. CYCLOPHOSPHAMIDE [Suspect]
     Route: 042
     Dates: start: 20111206, end: 20111206

REACTIONS (3)
  - THROMBOCYTOPENIA [None]
  - CYTOLYTIC HEPATITIS [None]
  - JAUNDICE CHOLESTATIC [None]
